FAERS Safety Report 13075923 (Version 1)
Quarter: 2016Q4

REPORT INFORMATION
  Report Type: Spontaneous
  Country: US (occurrence: US)
  Receive Date: 20161230
  Receipt Date: 20161230
  Transmission Date: 20170207
  Serious: Yes (Other)
  Sender: FDA-Public Use
  Company Number: US-AMGEN-USASP2016181667

PATIENT
  Age: 73 Year
  Sex: Female

DRUGS (1)
  1. ENBREL [Suspect]
     Active Substance: ETANERCEPT
     Indication: RHEUMATOID ARTHRITIS
     Dosage: 50 MG, QWK
     Route: 065

REACTIONS (20)
  - Pain [Unknown]
  - Blood pressure abnormal [Unknown]
  - Cystitis [Recovered/Resolved]
  - Concussion [Unknown]
  - Arthropathy [Unknown]
  - Gait disturbance [Unknown]
  - Impaired work ability [Unknown]
  - Impaired healing [Unknown]
  - Rheumatoid arthritis [Unknown]
  - Immunosuppression [Unknown]
  - Thrombosis [Unknown]
  - Chronic kidney disease [Unknown]
  - Body height decreased [Not Recovered/Not Resolved]
  - Tooth infection [Unknown]
  - Fall [Unknown]
  - Gastrooesophageal reflux disease [Unknown]
  - Aortic aneurysm [Unknown]
  - Weight decreased [Not Recovered/Not Resolved]
  - Emphysema [Not Recovered/Not Resolved]
  - Anaemia [Unknown]

NARRATIVE: CASE EVENT DATE: 2004
